FAERS Safety Report 9053853 (Version 1)
Quarter: 2013Q1

REPORT INFORMATION
  Report Type: Spontaneous
  Country: US (occurrence: None)
  Receive Date: 20130117
  Receipt Date: 20130117
  Transmission Date: 20140127
  Serious: No
  Sender: FDA-Public Use
  Company Number: 545247

PATIENT
  Sex: Female

DRUGS (2)
  1. DEXTROSE [Suspect]
     Indication: HYPOGLYCAEMIA
     Route: 042
     Dates: start: 20100326, end: 20100326
  2. DEXTROSE [Concomitant]

REACTIONS (3)
  - Infusion site extravasation [None]
  - Infusion site pain [None]
  - Infusion site discolouration [None]
